FAERS Safety Report 25069208 (Version 1)
Quarter: 2025Q1

REPORT INFORMATION
  Report Type: Spontaneous
  Country: US (occurrence: None)
  Receive Date: 20250312
  Receipt Date: 20250312
  Transmission Date: 20250408
  Serious: Yes (Hospitalization, Other)
  Sender: FDA-CTU
  Company Number: None

PATIENT
  Age: 64 Year
  Sex: Female
  Weight: 68.04 kg

DRUGS (3)
  1. SCOPOLAMINE [Suspect]
     Active Substance: SCOPOLAMINE
     Indication: Motion sickness
     Route: 050
  2. LEVOTHYROXINE SODIUM [Concomitant]
     Active Substance: LEVOTHYROXINE SODIUM
  3. SYNTHROID ONE TABLET EVERY MORNING [Concomitant]

REACTIONS (14)
  - Dizziness [None]
  - Nausea [None]
  - Product adhesion issue [None]
  - Malaise [None]
  - Asthenia [None]
  - Circulatory collapse [None]
  - Tremor [None]
  - Dysstasia [None]
  - Gait inability [None]
  - Palpitations [None]
  - Mydriasis [None]
  - Vision blurred [None]
  - Toxicity to various agents [None]
  - Product use issue [None]

NARRATIVE: CASE EVENT DATE: 20250204
